FAERS Safety Report 24841636 (Version 1)
Quarter: 2025Q1

REPORT INFORMATION
  Report Type: Spontaneous
  Country: CN (occurrence: CN)
  Receive Date: 20250114
  Receipt Date: 20250114
  Transmission Date: 20250409
  Serious: Yes (Hospitalization)
  Sender: PFIZER
  Company Number: CN-PFIZER INC-PV202500004601

PATIENT
  Age: 57 Year
  Sex: Female

DRUGS (5)
  1. EPIRUBICIN [Suspect]
     Active Substance: EPIRUBICIN
     Indication: B-cell lymphoma
     Dosage: 100 MG, 1X/DAY (D1)
     Route: 041
     Dates: start: 20250103, end: 20250103
  2. CYCLOPHOSPHAMIDE [Suspect]
     Active Substance: CYCLOPHOSPHAMIDE
     Indication: B-cell lymphoma
     Dosage: 1 G, 1X/DAY (D1)
     Route: 041
     Dates: start: 20250103, end: 20250103
  3. VINDESINE [Concomitant]
     Active Substance: VINDESINE
     Dosage: 3 MG, 1X/DAY (D1)
     Dates: start: 20250103, end: 20250103
  4. PREDNISONE [Concomitant]
     Active Substance: PREDNISONE
     Dosage: 50 MG, 2X/DAY (D1-D5)
     Dates: start: 20250103, end: 20250107
  5. RITUXIMAB [Concomitant]
     Active Substance: RITUXIMAB
     Dosage: 600 MG, 1X/DAY (D1)
     Dates: start: 20250103, end: 20250103

REACTIONS (5)
  - Diarrhoea [Recovering/Resolving]
  - Asthenia [Recovering/Resolving]
  - Gastrointestinal disorder [Unknown]
  - Gastrooesophageal reflux disease [Unknown]
  - Hypophagia [Unknown]

NARRATIVE: CASE EVENT DATE: 20250108
